FAERS Safety Report 18131053 (Version 3)
Quarter: 2021Q3

REPORT INFORMATION
  Report Type: Spontaneous
  Country: US (occurrence: US)
  Receive Date: 20200810
  Receipt Date: 20210922
  Transmission Date: 20211014
  Serious: Yes (Other)
  Sender: FDA-Public Use
  Company Number: US-PFIZER INC-2020301118

PATIENT
  Age: 74 Year
  Sex: Male

DRUGS (1)
  1. XALKORI [Suspect]
     Active Substance: CRIZOTINIB
     Dosage: 250 MG

REACTIONS (4)
  - Product dose omission issue [Unknown]
  - Seizure [Unknown]
  - Hypoacusis [Unknown]
  - Neoplasm progression [Unknown]
